FAERS Safety Report 9086832 (Version 1)
Quarter: 2013Q1

REPORT INFORMATION
  Report Type: Report from Study
  Country: US (occurrence: US)
  Receive Date: 20130201
  Receipt Date: 20130201
  Transmission Date: 20140127
  Serious: No
  Sender: FDA-Public Use
  Company Number: US-ABBOTT-12P-163-0995314-00

PATIENT
  Sex: Male

DRUGS (3)
  1. HUMIRA [Suspect]
     Indication: PSORIASIS
     Route: 058
     Dates: start: 201209
  2. HUMIRA [Suspect]
  3. HUMIRA [Suspect]
     Dosage: AS DIRECTED

REACTIONS (3)
  - Pruritus [Unknown]
  - Drug ineffective [Unknown]
  - Skin exfoliation [Unknown]
